FAERS Safety Report 8963457 (Version 1)
Quarter: 2012Q4

REPORT INFORMATION
  Report Type: 
  Country: US (occurrence: US)
  Receive Date: 20121214
  Receipt Date: 20121214
  Transmission Date: 20130627
  Serious: Yes (Death)
  Sender: FDA-Public Use
  Company Number: US-BRISTOL-MYERS SQUIBB COMPANY-17196395

PATIENT

DRUGS (1)
  1. YERVOY [Suspect]
     Dosage: Yervoy 200mg/40mL   00003-2328-22
Lot:919024, Exp date:OCt2014

REACTIONS (1)
  - Death [Fatal]
